FAERS Safety Report 16736252 (Version 1)
Quarter: 2019Q4

REPORT INFORMATION
  Report Type: Spontaneous
  Country: US (occurrence: US)
  Receive Date: 20190823
  Receipt Date: 20190823
  Transmission Date: 20200122
  Serious: Yes (Hospitalization)
  Sender: FDA-Public Use
  Company Number: None

PATIENT
  Age: 69 Year
  Sex: Female

DRUGS (2)
  1. FORTEO [Suspect]
     Active Substance: TERIPARATIDE
     Indication: HYPERTENSION
     Route: 058
     Dates: start: 20181019
  2. NA [Concomitant]
     Active Substance: SODIUM

REACTIONS (1)
  - Abdominoplasty [None]

NARRATIVE: CASE EVENT DATE: 20190809
